FAERS Safety Report 9355643 (Version 4)
Quarter: 2013Q3

REPORT INFORMATION
  Report Type: Spontaneous
  Country: RU (occurrence: RU)
  Receive Date: 20130619
  Receipt Date: 20130923
  Transmission Date: 20140515
  Serious: Yes (Other)
  Sender: FDA-Public Use
  Company Number: RU-BRISTOL-MYERS SQUIBB COMPANY-18914754

PATIENT
  Age: 38 Year
  Sex: Male

DRUGS (6)
  1. DASATINIB [Suspect]
     Indication: CHRONIC MYELOID LEUKAEMIA
     Dosage: TABS,DOSE REDUCED:29DEC12(70MG),INTRPTD:BTW 5-10JAN13+22JAN13,REINTRCD ON:11JAN13+8FEB2013 WITH 70MG
     Route: 048
     Dates: start: 20121222, end: 20130427
  2. HEPTRAL [Concomitant]
  3. VFEND [Concomitant]
  4. OMEPRAZOLE [Concomitant]
  5. NISE [Concomitant]
  6. KETOROL [Concomitant]

REACTIONS (12)
  - Haematotoxicity [Unknown]
  - Hydrocephalus [Unknown]
  - Encephalopathy [Unknown]
  - Hepatitis toxic [Unknown]
  - Headache [Recovered/Resolved]
  - Diplopia [Recovered/Resolved]
  - Hypertension [Recovered/Resolved]
  - Tachycardia [Recovered/Resolved]
  - Lacrimation increased [Recovered/Resolved]
  - Photophobia [Recovered/Resolved]
  - Arthralgia [Recovered/Resolved]
  - Asthenia [Recovered/Resolved]
